FAERS Safety Report 4744342-9 (Version None)
Quarter: 2005Q3

REPORT INFORMATION
  Report Type: 
  Country: None (occurrence: None)
  Receive Date: 20050811
  Receipt Date: 20050811
  Transmission Date: 20060218
  Serious: Yes (Other)
  Sender: FDA-Public Use
  Company Number: None

PATIENT
  Age: 45 Year
  Sex: Female
  Weight: 59.4212 kg

DRUGS (1)
  1. LINDANE [Suspect]
     Indication: ACARODERMATITIS
     Dosage: 1      1     TOPICAL
     Route: 061
     Dates: start: 20050808, end: 20050809

REACTIONS (3)
  - APPLICATION SITE PRURITUS [None]
  - HEADACHE [None]
  - RASH [None]
